FAERS Safety Report 13532750 (Version 1)
Quarter: 2017Q2

REPORT INFORMATION
  Report Type: Spontaneous
  Country: US (occurrence: US)
  Receive Date: 20170510
  Receipt Date: 20170510
  Transmission Date: 20170830
  Serious: Yes (Other)
  Sender: FDA-Public Use
  Company Number: US-UNICHEM LABORATORIES LIMITED-UCM201705-000104

PATIENT
  Age: 57 Year
  Sex: Female

DRUGS (3)
  1. MORPHINE [Suspect]
     Active Substance: MORPHINE
  2. METRONIDAZOLE. [Suspect]
     Active Substance: METRONIDAZOLE
  3. CEFOXITIN [Suspect]
     Active Substance: CEFOXITIN SODIUM

REACTIONS (1)
  - Systemic mastocytosis [Unknown]
